FAERS Safety Report 11149706 (Version 2)
Quarter: 2015Q2

REPORT INFORMATION
  Report Type: Spontaneous
  Country: US (occurrence: US)
  Receive Date: 20150529
  Receipt Date: 20150622
  Transmission Date: 20150821
  Serious: No
  Sender: FDA-Public Use
  Company Number: US-PFIZER INC-2015181159

PATIENT
  Age: 58 Year
  Sex: Female
  Weight: 86 kg

DRUGS (2)
  1. CHANTIX [Suspect]
     Active Substance: VARENICLINE TARTRATE
     Dosage: 2 (1MG TABLETS), SINGLE DOSE (ACCIDENTLY TOOK 2 PILLS)
     Route: 048
     Dates: start: 20150524, end: 20150524
  2. LOSARTAN AND HYDROCHLOROTHIAZIDE [Concomitant]
     Active Substance: HYDROCHLOROTHIAZIDE\LOSARTAN POTASSIUM
     Indication: HYPERTENSION
     Dosage: 100/25MG 1 TABLET PER DAY
     Route: 048

REACTIONS (8)
  - Vomiting [Recovering/Resolving]
  - Pain [Recovering/Resolving]
  - Anxiety [Recovering/Resolving]
  - Headache [Recovering/Resolving]
  - Malaise [Recovering/Resolving]
  - Accidental exposure to product [Recovering/Resolving]
  - Feeling abnormal [Recovering/Resolving]
  - Abdominal pain upper [Recovering/Resolving]

NARRATIVE: CASE EVENT DATE: 20150524
